FAERS Safety Report 6739994-8 (Version None)
Quarter: 2010Q2

REPORT INFORMATION
  Report Type: 
  Country: None (occurrence: None)
  Receive Date: 20100525
  Receipt Date: 20100519
  Transmission Date: 20101027
  Serious: Yes (Hospitalization, Other)
  Sender: FDA-Public Use
  Company Number: FR-BRISTOL-MYERS SQUIBB COMPANY-15113418

PATIENT
  Age: 97 Year
  Sex: Female

DRUGS (10)
  1. COUMADIN [Suspect]
     Dosage: 1.5MG/DAY
     Route: 048
     Dates: start: 20091002, end: 20100105
  2. ROCEPHIN [Suspect]
     Route: 030
     Dates: start: 20091224, end: 20100104
  3. TAVANIC [Suspect]
  4. TAREG [Concomitant]
     Route: 048
  5. ZOLPIDEM [Concomitant]
     Dosage: 1 TABLET
     Route: 048
  6. FUROSEMIDE [Concomitant]
     Route: 048
  7. GELUPRANE [Concomitant]
     Dosage: 6 CAPSULES
     Route: 048
  8. SKENAN [Concomitant]
     Dosage: SKENAN S.R 10 MG; 1 CAPSULE
     Route: 048
  9. LOXEN [Concomitant]
     Dosage: LOXEN S.R 50 MG; 1 CAPSULE
     Route: 048
  10. CACIT D3 [Concomitant]
     Dosage: 1DF=CACIT + VITAMINE D3 1000 MG/880 IU
     Route: 048

REACTIONS (8)
  - BRONCHITIS [None]
  - ERYSIPELAS [None]
  - INTERNATIONAL NORMALISED RATIO INCREASED [None]
  - OVERDOSE [None]
  - PLATELET COUNT DECREASED [None]
  - RENAL FAILURE [None]
  - TOXIC SKIN ERUPTION [None]
  - VASCULAR PURPURA [None]
